FAERS Safety Report 24539139 (Version 1)
Quarter: 2024Q4

REPORT INFORMATION
  Report Type: Spontaneous
  Country: CN (occurrence: CN)
  Receive Date: 20241023
  Receipt Date: 20241023
  Transmission Date: 20250114
  Serious: Yes (Hospitalization)
  Sender: ROCHE
  Company Number: CN-ROCHE-10000108763

PATIENT
  Age: 33 Year
  Sex: Female

DRUGS (17)
  1. BEVACIZUMAB [Suspect]
     Active Substance: BEVACIZUMAB
     Indication: Malignant neoplasm of uterine adnexa
     Route: 065
  2. BEVACIZUMAB [Suspect]
     Active Substance: BEVACIZUMAB
     Route: 065
     Dates: start: 20220601
  3. BEVACIZUMAB [Suspect]
     Active Substance: BEVACIZUMAB
     Route: 065
     Dates: start: 202210
  4. BEVACIZUMAB [Suspect]
     Active Substance: BEVACIZUMAB
     Route: 065
     Dates: start: 202303
  5. BEVACIZUMAB [Suspect]
     Active Substance: BEVACIZUMAB
     Route: 065
     Dates: start: 202306
  6. CYCLOPHOSPHAMIDE [Suspect]
     Active Substance: CYCLOPHOSPHAMIDE
     Indication: Malignant neoplasm of uterine adnexa
     Route: 065
     Dates: start: 2022
  7. NEDAPLATIN [Suspect]
     Active Substance: NEDAPLATIN
     Indication: Malignant neoplasm of uterine adnexa
     Route: 065
     Dates: start: 202210
  8. ANASTROZOLE [Suspect]
     Active Substance: ANASTROZOLE
     Indication: Malignant neoplasm of uterine adnexa
     Route: 065
     Dates: start: 202210
  9. GEMCITABINE [Suspect]
     Active Substance: GEMCITABINE
     Indication: Malignant neoplasm of uterine adnexa
     Dosage: ON DAYS 1 AND 8
     Route: 065
     Dates: start: 202306
  10. GEMCITABINE [Suspect]
     Active Substance: GEMCITABINE
     Dosage: ON DAYS 1 AND 8
     Route: 065
     Dates: start: 20230904
  11. PACLITAXEL [Concomitant]
     Active Substance: PACLITAXEL
     Indication: Malignant neoplasm of uterine adnexa
     Dates: start: 20220601
  12. CARBOPLATIN [Concomitant]
     Active Substance: CARBOPLATIN
     Indication: Malignant neoplasm of uterine adnexa
     Dates: start: 20220601
  13. DOCETAXEL [Concomitant]
     Active Substance: DOCETAXEL
     Indication: Malignant neoplasm of uterine adnexa
  14. OXALIPLATIN [Concomitant]
     Active Substance: OXALIPLATIN
     Dates: start: 20230904
  15. LENVATINIB [Concomitant]
     Active Substance: LENVATINIB
     Dates: start: 20230904
  16. LENVATINIB [Concomitant]
     Active Substance: LENVATINIB
     Dates: start: 20231120
  17. LETROZOLE [Concomitant]
     Active Substance: LETROZOLE
     Dates: start: 20231120

REACTIONS (5)
  - Pleural effusion [Recovered/Resolved]
  - Disease progression [Recovered/Resolved]
  - Metastases to pleura [Recovered/Resolved]
  - Metastases to peritoneum [Recovered/Resolved]
  - Off label use [Unknown]
